FAERS Safety Report 5850175-2 (Version None)
Quarter: 2008Q3

REPORT INFORMATION
  Report Type: 
  Country: None (occurrence: None)
  Receive Date: 20080819
  Receipt Date: 20080805
  Transmission Date: 20090109
  Serious: No
  Sender: FDA-Public Use
  Company Number: US-BOEHRINGER INGELHEIM GMBH, GERMANY-2008-BP-12312BP

PATIENT
  Age: 54 Year
  Sex: Female

DRUGS (3)
  1. ZANTAC 150 [Suspect]
     Indication: GASTROOESOPHAGEAL REFLUX DISEASE
     Route: 048
     Dates: start: 20080804, end: 20080805
  2. ZANTAC 150 [Suspect]
     Indication: HYPERCHLORHYDRIA
  3. ZANTAC 150 [Suspect]
     Indication: DYSPEPSIA

REACTIONS (2)
  - CHEST PAIN [None]
  - HAEMORRHAGE [None]
